FAERS Safety Report 9238524 (Version 1)
Quarter: 2013Q2

REPORT INFORMATION
  Report Type: Spontaneous
  Country: JP (occurrence: JP)
  Receive Date: 20130418
  Receipt Date: 20130418
  Transmission Date: 20140414
  Serious: Yes (Hospitalization, Other)
  Sender: FDA-Public Use
  Company Number: JP-ASTELLAS-2013JP002340

PATIENT
  Age: 90 Year
  Sex: Male

DRUGS (13)
  1. PROGRAF [Suspect]
     Indication: RHEUMATOID ARTHRITIS
     Dosage: 1 MG, UID/QD
     Route: 048
     Dates: start: 20110123, end: 20110925
  2. PROGRAF [Suspect]
     Dosage: 0.5 MG, UID/QD
     Route: 048
     Dates: start: 20111011, end: 20111106
  3. PROGRAF [Suspect]
     Dosage: 0.5 MG, QOD
     Route: 048
     Dates: start: 20111107, end: 20121202
  4. PIPERACILLIN SODIUM [Suspect]
     Indication: CONTUSION
     Dosage: 2 G, UNKNOWN/D
     Route: 065
     Dates: start: 20121119, end: 20121121
  5. MEIACT [Suspect]
     Indication: CONTUSION
     Dosage: UNK
     Route: 048
     Dates: start: 20121109, end: 20121111
  6. MEIACT [Suspect]
     Dosage: UNK
     Route: 048
     Dates: start: 20121122, end: 20121124
  7. FOIPAN [Concomitant]
     Indication: PANCREATITIS CHRONIC
     Dosage: 100 MG, BID
     Route: 048
  8. MUCOSTA [Concomitant]
     Indication: GASTRITIS
     Dosage: 100 MG, BID
     Route: 048
     Dates: start: 20090723
  9. GASTER [Concomitant]
     Indication: GASTRITIS
     Dosage: 20 MG, UID/QD
     Route: 048
     Dates: start: 20090723
  10. SEVEN E.P [Concomitant]
     Indication: GASTRITIS
     Dosage: 2 DF, BID
     Route: 048
     Dates: start: 20070824, end: 20120923
  11. AMLODIN [Concomitant]
     Indication: HYPERTENSION
     Dosage: 2.5 MG, UID/QD
     Route: 048
     Dates: start: 20090723, end: 20121202
  12. AZULFIDINE EN [Concomitant]
     Indication: RHEUMATOID ARTHRITIS
     Dosage: 500 MG, BID
     Route: 048
     Dates: start: 20100715, end: 20101215
  13. PREDONINE                          /00016201/ [Concomitant]
     Indication: RHEUMATOID ARTHRITIS
     Dosage: 5 MG, UID/QD
     Route: 048

REACTIONS (5)
  - Intentional drug misuse [Unknown]
  - Blood potassium increased [Recovered/Resolved]
  - Blood creatinine increased [Recovered/Resolved]
  - Hepatic function abnormal [Recovered/Resolved]
  - Contusion [Recovering/Resolving]
